FAERS Safety Report 8596236-9 (Version None)
Quarter: 2012Q3

REPORT INFORMATION
  Report Type: 
  Country: None (occurrence: None)
  Receive Date: 20120815
  Receipt Date: 20120807
  Transmission Date: 20120928
  Serious: Yes (Other)
  Sender: FDA-Public Use
  Company Number: US-BAYER-2012-081374

PATIENT
  Age: 58 Year
  Sex: Female
  Weight: 87.982 kg

DRUGS (2)
  1. OXYCODONE [Concomitant]
  2. ASPIRIN [Suspect]
     Indication: BACK PAIN
     Dosage: 1 TAB, BID
     Route: 048
     Dates: start: 20120601, end: 20120806

REACTIONS (2)
  - DYSURIA [None]
  - BLOOD URINE PRESENT [None]
